FAERS Safety Report 5555310-1 (Version None)
Quarter: 2007Q4

REPORT INFORMATION
  Report Type: 
  Country: None (occurrence: None)
  Receive Date: 20071213
  Receipt Date: 20070814
  Transmission Date: 20080405
  Serious: No
  Sender: FDA-Public Use
  Company Number: US-AMGEN-KDL238921

PATIENT
  Sex: Female

DRUGS (2)
  1. ENBREL [Suspect]
     Indication: RHEUMATOID ARTHRITIS
     Route: 058
     Dates: start: 20070501
  2. SULFASALAZINE [Concomitant]
     Dates: start: 20020101

REACTIONS (12)
  - ALOPECIA [None]
  - BRONCHITIS [None]
  - CHEST DISCOMFORT [None]
  - CHEST PAIN [None]
  - COUGH [None]
  - FUNGAL INFECTION [None]
  - HAEMORRHAGE [None]
  - HEADACHE [None]
  - INJECTION SITE PAIN [None]
  - RHINITIS [None]
  - SECRETION DISCHARGE [None]
  - SINUSITIS [None]
